FAERS Safety Report 4326599-1 (Version None)
Quarter: 2004Q1

REPORT INFORMATION
  Report Type: 
  Country: None (occurrence: None)
  Receive Date: 20040330
  Receipt Date: 20030702
  Transmission Date: 20041129
  Serious: Yes (Death, Hospitalization)
  Sender: FDA-Public Use
  Company Number: 12317855

PATIENT
  Age: 33 Year
  Sex: Female

DRUGS (10)
  1. PARAPLATIN [Suspect]
     Indication: NON-HODGKIN'S LYMPHOMA
     Route: 042
     Dates: start: 20020701, end: 20020801
  2. ENDOXAN [Suspect]
     Indication: NON-HODGKIN'S LYMPHOMA
     Dosage: TOTAL DOSE 10,000 MG
     Dates: start: 20000601
  3. LASTET [Suspect]
     Indication: NON-HODGKIN'S LYMPHOMA
     Dosage: HIGH-DOSE TREATMENT - TOTAL 2025 MG  INTERMITTANT THERAPY JUN 2000 - SEP 2002
     Route: 042
     Dates: start: 20020901
  4. IFOMIDE [Suspect]
     Indication: NON-HODGKIN'S LYMPHOMA
     Route: 042
     Dates: start: 20020701, end: 20020801
  5. ADRIAMYCIN PFS [Suspect]
     Indication: NON-HODGKIN'S LYMPHOMA
     Dosage: TOTAL DOSE 500 MG
     Dates: start: 20000601
  6. ONCOVIN [Suspect]
     Indication: NON-HODGKIN'S LYMPHOMA
     Dosage: TOTAL DOSE 15 MG
     Dates: start: 20000601
  7. NOVANTRONE [Suspect]
     Indication: NON-HODGKIN'S LYMPHOMA
     Route: 042
     Dates: start: 20020701, end: 20020801
  8. PREDNISONE [Suspect]
     Indication: NON-HODGKIN'S LYMPHOMA
     Dates: start: 20000601
  9. PREDNISOLONE [Concomitant]
     Indication: NON-HODGKIN'S LYMPHOMA
     Dates: start: 20020701, end: 20020801
  10. PERAZOLIN [Concomitant]
     Indication: NON-HODGKIN'S LYMPHOMA
     Dosage: 400 MG/DAY X 2/WK, TOTAL DOSE 10,200 MG.
     Route: 048
     Dates: start: 20010501, end: 20020501

REACTIONS (5)
  - DISEASE RECURRENCE [None]
  - LYMPHOMA [None]
  - MYELODYSPLASTIC SYNDROME [None]
  - PANCYTOPENIA [None]
  - PNEUMONIA FUNGAL [None]
